FAERS Safety Report 7672812-2 (Version None)
Quarter: 2011Q3

REPORT INFORMATION
  Report Type: 
  Country: None (occurrence: None)
  Receive Date: 20110809
  Receipt Date: 20110803
  Transmission Date: 20111222
  Serious: Yes (Death)
  Sender: FDA-Public Use
  Company Number: US-PFIZER INC-2011157556

PATIENT
  Sex: Male
  Weight: 113 kg

DRUGS (15)
  1. IBUPROFEN [Suspect]
     Indication: OSTEOARTHRITIS
     Dosage: 600 MG, 3X/DAY
     Route: 048
     Dates: start: 20110607
  2. INDAPAMIDE [Concomitant]
     Dosage: UNK
     Route: 048
     Dates: start: 20010101
  3. POTASSIUM CHLORIDE [Concomitant]
     Dosage: UNK
     Route: 048
     Dates: start: 19980101
  4. AMLODIPINE [Concomitant]
     Dosage: UNK
     Route: 048
     Dates: start: 19980101
  5. TERAZOSIN [Concomitant]
     Dosage: UNK
     Route: 048
     Dates: start: 20090101
  6. NEXIUM [Concomitant]
     Indication: PROPHYLAXIS
     Dosage: 20 OR 40 MG, 1X/DAY
     Route: 048
     Dates: start: 20110607
  7. LORATADINE [Concomitant]
     Dosage: UNK
     Route: 048
     Dates: start: 20060101
  8. FLUNISOLIDE [Concomitant]
     Dosage: UNK
     Route: 048
     Dates: start: 20060101
  9. IBUPROFEN [Suspect]
     Indication: RHEUMATOID ARTHRITIS
  10. ACETYLSALICYLIC ACID [Concomitant]
     Dosage: UNK
     Route: 048
     Dates: start: 20000101
  11. ROSUVASTATIN [Concomitant]
     Dosage: UNK
     Route: 048
     Dates: start: 20110401
  12. ATENOLOL [Concomitant]
     Dosage: UNK
     Route: 048
     Dates: start: 19980101
  13. TERBINAFINE HYDROCHLORIDE [Concomitant]
     Dosage: 1%
     Route: 061
     Dates: start: 20060101
  14. ALLOPURINOL [Concomitant]
     Dosage: UNK
     Route: 048
     Dates: start: 20060101
  15. VARDENAFIL [Concomitant]
     Indication: ERECTILE DYSFUNCTION
     Dosage: 20 MG, AS NEEDED
     Route: 048
     Dates: start: 20010101

REACTIONS (3)
  - ARTERIOSCLEROSIS CORONARY ARTERY [None]
  - CARDIAC ARREST [None]
  - HYPERTENSIVE HEART DISEASE [None]
